FAERS Safety Report 19616879 (Version 1)
Quarter: 2021Q3

REPORT INFORMATION
  Report Type: Spontaneous
  Country: US (occurrence: US)
  Receive Date: 20210727
  Receipt Date: 20210727
  Transmission Date: 20211014
  Serious: No
  Sender: FDA-Public Use
  Company Number: US-ABBVIE-21K-163-3716656-00

PATIENT
  Age: 51 Year
  Sex: Female
  Weight: 59.02 kg

DRUGS (3)
  1. SYNTHROID [Suspect]
     Active Substance: LEVOTHYROXINE SODIUM
     Indication: HYPOTHYROIDISM
     Dosage: INCREASED TO 50 MICROGRAMS
     Route: 048
     Dates: start: 20200104, end: 202011
  2. SYNTHROID [Suspect]
     Active Substance: LEVOTHYROXINE SODIUM
     Indication: AUTOIMMUNE THYROIDITIS
     Dosage: STARTED TWO 25 MICROGRAMS
     Route: 048
     Dates: start: 202011, end: 20201231
  3. SYNTHROID [Suspect]
     Active Substance: LEVOTHYROXINE SODIUM
     Route: 048
     Dates: start: 20210101

REACTIONS (9)
  - Arthralgia [Not Recovered/Not Resolved]
  - Lactose intolerance [Recovering/Resolving]
  - Sleep disorder [Recovered/Resolved]
  - Cough [Not Recovered/Not Resolved]
  - Amnesia [Not Recovered/Not Resolved]
  - Gastrooesophageal reflux disease [Recovering/Resolving]
  - Dysphonia [Not Recovered/Not Resolved]
  - Dyspepsia [Recovered/Resolved]
  - Dyspnoea [Recovering/Resolving]

NARRATIVE: CASE EVENT DATE: 202001
